FAERS Safety Report 7598656-8 (Version None)
Quarter: 2011Q3

REPORT INFORMATION
  Report Type: 
  Country: None (occurrence: None)
  Receive Date: 20110711
  Receipt Date: 20110630
  Transmission Date: 20111222
  Serious: Yes (Hospitalization)
  Sender: FDA-Public Use
  Company Number: NL-BIOGENIDEC-2011BI018221

PATIENT
  Age: 30 Year
  Sex: Female

DRUGS (4)
  1. NITROFURANTOINE [Concomitant]
  2. TYSABRI [Suspect]
     Route: 042
     Dates: start: 20110616
  3. TYSABRI [Suspect]
     Indication: RELAPSING-REMITTING MULTIPLE SCLEROSIS
     Route: 042
     Dates: start: 20100211, end: 20110421
  4. NSAID [Concomitant]
     Dates: end: 20110429

REACTIONS (1)
  - COLITIS [None]
